FAERS Safety Report 11592663 (Version 1)
Quarter: 2015Q4

REPORT INFORMATION
  Report Type: Spontaneous
  Country: US (occurrence: None)
  Receive Date: 20151002
  Receipt Date: 20151002
  Transmission Date: 20160304
  Serious: Yes (Disabling)
  Sender: FDA-Public Use
  Company Number: None

PATIENT
  Age: 61 Year
  Sex: Female
  Weight: 68.04 kg

DRUGS (3)
  1. ALLEGRA [Concomitant]
     Active Substance: FEXOFENADINE HYDROCHLORIDE
  2. SULFAMETHOXAZOLE-TRIMETHOPRIM (SMZ) [Suspect]
     Active Substance: SULFAMETHOXAZOLE\TRIMETHOPRIM
     Indication: URINARY TRACT INFECTION
     Dosage: 1 PILL
     Route: 048
     Dates: start: 20150918, end: 20150920
  3. LEVOTHYROXINE. [Concomitant]
     Active Substance: LEVOTHYROXINE

REACTIONS (12)
  - Decreased appetite [None]
  - Productive cough [None]
  - Pain in extremity [None]
  - Oral discomfort [None]
  - Lower respiratory tract congestion [None]
  - Muscular weakness [None]
  - Insomnia [None]
  - Myalgia [None]
  - Oedema peripheral [None]
  - Diarrhoea [None]
  - Nausea [None]
  - Chills [None]

NARRATIVE: CASE EVENT DATE: 20150918
